FAERS Safety Report 4864946-2 (Version None)
Quarter: 2005Q4

REPORT INFORMATION
  Report Type: 
  Country: None (occurrence: None)
  Receive Date: 20051219
  Receipt Date: 20051212
  Transmission Date: 20060501
  Serious: Yes (Hospitalization, Other)
  Sender: FDA-Public Use
  Company Number: 200512575BWH

PATIENT
  Age: 46 Year
  Sex: Female
  Weight: 77 kg

DRUGS (7)
  1. DACARBAZINE [Suspect]
     Indication: METASTATIC MALIGNANT MELANOMA
     Dosage: SEE IMAGE
     Route: 042
     Dates: start: 20050629, end: 20050727
  2. DACARBAZINE [Suspect]
     Indication: METASTATIC MALIGNANT MELANOMA
     Dosage: SEE IMAGE
     Route: 042
     Dates: start: 20050823
  3. DACARBAZINE [Suspect]
     Indication: METASTATIC MALIGNANT MELANOMA
     Dosage: SEE IMAGE
     Route: 042
     Dates: start: 20050921
  4. DACARBAZINE [Suspect]
     Indication: METASTATIC MALIGNANT MELANOMA
     Dosage: SEE IMAGE
     Route: 042
     Dates: start: 20051012
  5. CONTRAST DYE INJECTABLE (IODINE) [Suspect]
     Indication: SCAN
     Dosage: INTRAVENOUS
     Route: 042
     Dates: start: 20051101
  6. OXYCODONE [Concomitant]
  7. COMPAZINE [Concomitant]

REACTIONS (9)
  - ANAPHYLACTIC REACTION [None]
  - BLOOD PRESSURE IMMEASURABLE [None]
  - DEHYDRATION [None]
  - LOSS OF CONSCIOUSNESS [None]
  - NAUSEA [None]
  - PYREXIA [None]
  - SEPSIS [None]
  - TOOTH ABSCESS [None]
  - VOMITING [None]
